FAERS Safety Report 13332789 (Version 1)
Quarter: 2017Q1

REPORT INFORMATION
  Report Type: Spontaneous
  Country: SE (occurrence: SE)
  Receive Date: 20170314
  Receipt Date: 20170314
  Transmission Date: 20170428
  Serious: Yes (Other)
  Sender: FDA-Public Use
  Company Number: SE-TEVA-747487ACC

PATIENT
  Age: 21 Year
  Sex: Male

DRUGS (1)
  1. GABAPENTIN TEVA 100 MG HARD CAPSULES [Suspect]
     Active Substance: GABAPENTIN
     Route: 048

REACTIONS (1)
  - Acne [Not Recovered/Not Resolved]
